FAERS Safety Report 9418603 (Version 1)
Quarter: 2013Q3

REPORT INFORMATION
  Report Type: Spontaneous
  Country: US (occurrence: US)
  Receive Date: 20130725
  Receipt Date: 20130725
  Transmission Date: 20140515
  Serious: Yes (Life-Threatening, Hospitalization)
  Sender: FDA-Public Use
  Company Number: US-GE HEALTHCARE MEDICAL DIAGNOSTICS-OMPQ-PR-1307L-0911

PATIENT
  Age: 53 Year
  Sex: Female
  Weight: 57 kg

DRUGS (2)
  1. OMNIPAQUE [Suspect]
     Indication: PULMONARY EMBOLISM
     Route: 042
  2. OMNIPAQUE [Suspect]
     Indication: DIAGNOSTIC PROCEDURE

REACTIONS (3)
  - Thyrotoxic crisis [Recovered/Resolved]
  - Cardio-respiratory arrest [Recovered/Resolved]
  - Hypersensitivity [Recovered/Resolved]
